FAERS Safety Report 9378298 (Version 1)
Quarter: 2013Q3

REPORT INFORMATION
  Report Type: Spontaneous
  Country: US (occurrence: US)
  Receive Date: 20130701
  Receipt Date: 20130701
  Transmission Date: 20140515
  Serious: Yes (Other)
  Sender: FDA-Public Use
  Company Number: US-UCBSA-089994

PATIENT
  Sex: 0

DRUGS (8)
  1. CIMZIA [Suspect]
     Dosage: DOSE: UNKNOWN
  2. APRISO [Concomitant]
     Dosage: UNKNOWN DOSE
  3. LEXAPRO [Concomitant]
     Dosage: UNKNOWN DOSE
  4. IRON INFUSIONS [Concomitant]
     Dosage: UNKNOWN DOSE
  5. MULTIVITAMIN [Concomitant]
     Dosage: UNKNOWN DOSE
  6. PROBIOTIC [Concomitant]
     Dosage: UNKNOWN DOSE
  7. CALCIUM/MAGNESIUM/VITAMIN D [Concomitant]
     Dosage: UNKNOWN DOSE
  8. FISH OIL [Concomitant]
     Dosage: UNKNOWN DOSE

REACTIONS (2)
  - Intestinal stenosis [Unknown]
  - Pain [Unknown]
